FAERS Safety Report 11150962 (Version 2)
Quarter: 2015Q2

REPORT INFORMATION
  Report Type: Spontaneous
  Country: CA (occurrence: None)
  Receive Date: 20150528
  Receipt Date: 20150617
  Transmission Date: 20150821
  Serious: Yes (Hospitalization, Other)
  Sender: FDA-Public Use
  Company Number: 2015-001085

PATIENT
  Age: 88 Year
  Sex: Female

DRUGS (13)
  1. FUROSEMIDE. [Concomitant]
     Active Substance: FUROSEMIDE
  2. RABEPRAZOLE [Concomitant]
     Active Substance: RABEPRAZOLE
  3. SYMBICORT [Concomitant]
     Active Substance: BUDESONIDE\FORMOTEROL FUMARATE DIHYDRATE
  4. SALBUTAMOL [Concomitant]
     Active Substance: ALBUTEROL
  5. SITAGLIPTIN [Concomitant]
     Active Substance: SITAGLIPTIN
  6. ACTONEL [Suspect]
     Active Substance: RISEDRONATE SODIUM
     Indication: OSTEOPOROSIS
     Route: 048
  7. METFORMIN [Concomitant]
     Active Substance: METFORMIN HYDROCHLORIDE
  8. ALLOPURINOL. [Concomitant]
     Active Substance: ALLOPURINOL
  9. ATORVASTATIN [Concomitant]
     Active Substance: ATORVASTATIN
  10. RAMIPRIL. [Concomitant]
     Active Substance: RAMIPRIL
  11. WARFARIN [Concomitant]
     Active Substance: WARFARIN
  12. ATENOLOL. [Concomitant]
     Active Substance: ATENOLOL
  13. DIGOXIN. [Concomitant]
     Active Substance: DIGOXIN

REACTIONS (2)
  - Cerebrovascular accident [None]
  - International normalised ratio decreased [None]

NARRATIVE: CASE EVENT DATE: 20150511
